FAERS Safety Report 7368042-4 (Version None)
Quarter: 2011Q1

REPORT INFORMATION
  Report Type: 
  Country: None (occurrence: None)
  Receive Date: 20110323
  Receipt Date: 20110308
  Transmission Date: 20110831
  Serious: Yes (Death, Hospitalization)
  Sender: FDA-Public Use
  Company Number: FR-RANBAXY-2011RR-43082

PATIENT
  Age: 76 Year
  Sex: Female

DRUGS (9)
  1. PROPOXIPHENE NAPSYLATE [Suspect]
     Indication: PRODUCT USED FOR UNKNOWN INDICATION
     Route: 065
  2. DILTIAZEM HCL [Concomitant]
     Indication: ANGINA PECTORIS
     Dosage: 5 MG, UNK
     Route: 048
  3. MORPHINE [Suspect]
     Indication: PRODUCT USED FOR UNKNOWN INDICATION
     Route: 065
  4. LEVOFLOXACIN [Suspect]
  5. TOPALGIC [Suspect]
     Indication: FEMORAL NECK FRACTURE
     Dosage: 100 MG, SINGLE
     Route: 042
     Dates: start: 19980924, end: 19980924
  6. ULTRAM [Suspect]
     Indication: PRODUCT USED FOR UNKNOWN INDICATION
     Route: 048
  7. BUFLOMEDIL HYDROCHLORIDE [Concomitant]
     Route: 065
  8. LORAZEPAM [Concomitant]
     Dosage: 1 MG, UNK
     Route: 065
  9. PARACETAMOL [Suspect]
     Indication: PRODUCT USED FOR UNKNOWN INDICATION
     Route: 065

REACTIONS (2)
  - GRAND MAL CONVULSION [None]
  - DEATH [None]
